FAERS Safety Report 21026321 (Version 1)
Quarter: 2022Q2

REPORT INFORMATION
  Report Type: Report from Study
  Country: JP (occurrence: JP)
  Receive Date: 20220630
  Receipt Date: 20220630
  Transmission Date: 20220720
  Serious: Yes (Life-Threatening, Hospitalization, Disabling)
  Sender: FDA-Public Use
  Company Number: JP-ELI_LILLY_AND_COMPANY-JP202206013494

PATIENT
  Age: 70 Year
  Sex: Female
  Weight: 43.7 kg

DRUGS (40)
  1. OLUMIANT [Suspect]
     Active Substance: BARICITINIB
     Indication: COVID-19 pneumonia
     Dosage: 4 MG, DAILY
     Route: 048
     Dates: start: 20220324, end: 20220406
  2. METHYLPREDNISOLONE [Suspect]
     Active Substance: METHYLPREDNISOLONE
     Indication: COVID-19 pneumonia
     Dosage: 1000 MG, OTHER
     Route: 065
     Dates: start: 20220401, end: 20220403
  3. METHYLPREDNISOLONE [Suspect]
     Active Substance: METHYLPREDNISOLONE
     Dosage: 1000 MG, OTHER
     Route: 065
     Dates: start: 20220413, end: 20220415
  4. DECADRON [Suspect]
     Active Substance: DEXAMETHASONE
     Indication: COVID-19 pneumonia
     Dosage: 4.95 MG, DAILY
     Route: 042
     Dates: start: 20220324, end: 20220328
  5. DECADRON [Suspect]
     Active Substance: DEXAMETHASONE
     Indication: COVID-19 pneumonia
     Dosage: 6 MG, OTHER
     Route: 065
     Dates: start: 20220329, end: 20220331
  6. PREDNISOLONE [Suspect]
     Active Substance: PREDNISOLONE
     Indication: COVID-19 pneumonia
     Dosage: 40 MG, DAILY
     Route: 048
     Dates: start: 20220404, end: 20220406
  7. PREDNISOLONE [Suspect]
     Active Substance: PREDNISOLONE
     Dosage: 20 MG, DAILY
     Route: 048
     Dates: start: 20220407, end: 20220412
  8. PREDNISOLONE [Suspect]
     Active Substance: PREDNISOLONE
     Dosage: 20 MG, DAILY
     Route: 065
     Dates: start: 20220524, end: 20220530
  9. PREDNISOLONE [Suspect]
     Active Substance: PREDNISOLONE
     Dosage: 15 MG, DAILY
     Route: 048
     Dates: start: 20220531, end: 20220606
  10. PREDNISOLONE [Suspect]
     Active Substance: PREDNISOLONE
     Dosage: 10 MG, DAILY
     Route: 048
     Dates: start: 20220607, end: 20220613
  11. PREDNISOLONE [Suspect]
     Active Substance: PREDNISOLONE
     Dosage: 7.5 MG, DAILY
     Route: 048
     Dates: start: 20220614, end: 20220619
  12. PREDNISOLONE [Suspect]
     Active Substance: PREDNISOLONE
     Dosage: 5.0 MG, DAILY
     Route: 048
     Dates: start: 20220620, end: 20220623
  13. PREDNISOLONE [Suspect]
     Active Substance: PREDNISOLONE
     Dosage: 2.5 MG, DAILY
     Route: 048
     Dates: start: 20220624
  14. ACTEMRA [Suspect]
     Active Substance: TOCILIZUMAB
     Indication: COVID-19 pneumonia
     Dosage: 320 MG, DAILY
     Route: 065
     Dates: start: 20220425, end: 20220425
  15. LEVOFLOXACIN [Suspect]
     Active Substance: LEVOFLOXACIN
     Indication: Atypical pneumonia
     Route: 042
  16. GANCICLOVIR [Suspect]
     Active Substance: GANCICLOVIR
     Indication: Product used for unknown indication
     Route: 065
  17. REMDESIVIR [Concomitant]
     Active Substance: REMDESIVIR
     Indication: COVID-19 pneumonia
     Dosage: 200 MG, DAILY
     Route: 065
     Dates: start: 20220324, end: 20220324
  18. REMDESIVIR [Concomitant]
     Active Substance: REMDESIVIR
     Dosage: 100 MG, DAILY
     Route: 065
     Dates: start: 20220325, end: 20220402
  19. HEPARIN [Concomitant]
     Active Substance: HEPARIN SODIUM
     Indication: Prophylaxis
     Dosage: 120000 DOSAGE FORM, OTHER
     Route: 042
     Dates: start: 20220324, end: 20220325
  20. HEPARIN [Concomitant]
     Active Substance: HEPARIN SODIUM
     Dosage: 14400 DOSAGE FORM, OTHER
     Route: 042
     Dates: start: 20220325, end: 20220328
  21. HEPARIN [Concomitant]
     Active Substance: HEPARIN SODIUM
     Dosage: 12000 DOSAGE FORM, OTHER
     Route: 042
     Dates: start: 20220326, end: 20220329
  22. HEPARIN [Concomitant]
     Active Substance: HEPARIN SODIUM
     Dosage: 14400 DOSAGE FORM
     Route: 042
     Dates: start: 20220329, end: 20220411
  23. HEPARIN [Concomitant]
     Active Substance: HEPARIN SODIUM
     Dosage: 16800 DOSAGE FORM, OTHER
     Route: 042
     Dates: start: 20220411, end: 20220418
  24. HEPARIN [Concomitant]
     Active Substance: HEPARIN SODIUM
     Dosage: 14400 DOSAGE FORM
     Route: 065
     Dates: start: 20220418, end: 20220420
  25. HEPARIN [Concomitant]
     Active Substance: HEPARIN SODIUM
     Dosage: 12000 DOSAGE FORM, OTHER
     Dates: start: 20220420, end: 20220425
  26. HEPARIN [Concomitant]
     Active Substance: HEPARIN SODIUM
     Dosage: 9600 DOSAGE FORM, OTHER
     Route: 042
     Dates: start: 20220501, end: 20220503
  27. HEPARIN [Concomitant]
     Active Substance: HEPARIN SODIUM
     Dosage: 7200 DOSAGE FORM, OTHER
     Route: 042
     Dates: start: 20220503, end: 20220520
  28. HEPARIN [Concomitant]
     Active Substance: HEPARIN SODIUM
     Dosage: 9600 DOSAGE FORM, OTHER
     Route: 042
     Dates: start: 20220520, end: 20220527
  29. HEPARIN [Concomitant]
     Active Substance: HEPARIN SODIUM
     Dosage: 12000 DOSAGE FORM, OTHER
     Route: 042
     Dates: start: 20220527, end: 20220604
  30. HEPARIN [Concomitant]
     Active Substance: HEPARIN SODIUM
     Dosage: 14400 DOSAGE FORM
     Route: 042
     Dates: start: 20220604, end: 20220608
  31. HEPARIN [Concomitant]
     Active Substance: HEPARIN SODIUM
     Dosage: 16800 DOSAGE FORM, OTHER
     Route: 042
     Dates: start: 20220608, end: 20220610
  32. HEPARIN [Concomitant]
     Active Substance: HEPARIN SODIUM
     Dosage: 14400 DOSAGE FORM, OTHER
     Route: 042
     Dates: start: 20220610, end: 20220613
  33. HEPARIN [Concomitant]
     Active Substance: HEPARIN SODIUM
     Dosage: 16800 DOSAGE FORM, OTHER
     Route: 042
     Dates: start: 20220613, end: 20220615
  34. HEPARIN [Concomitant]
     Active Substance: HEPARIN SODIUM
     Dosage: 14400 DOSAGE FORM, OTHER
     Route: 042
     Dates: start: 20220615
  35. PREDNISOLONE SODIUM SUCCINATE [Concomitant]
     Active Substance: PREDNISOLONE SODIUM SUCCINATE
     Indication: COVID-19 pneumonia
     Dosage: 40 MG, DAILY
     Route: 065
     Dates: start: 20220416, end: 20220428
  36. PREDNISOLONE SODIUM SUCCINATE [Concomitant]
     Active Substance: PREDNISOLONE SODIUM SUCCINATE
     Dosage: 35 MG, DAILY
     Route: 065
     Dates: start: 20220429, end: 20220513
  37. PREDNISOLONE SODIUM SUCCINATE [Concomitant]
     Active Substance: PREDNISOLONE SODIUM SUCCINATE
     Dosage: 30 MG, DAILY
     Route: 065
     Dates: start: 20220514, end: 20220523
  38. AMPICILLIN SODIUM\SULBACTAM SODIUM [Concomitant]
     Active Substance: AMPICILLIN SODIUM\SULBACTAM SODIUM
     Indication: Pneumonia bacterial
     Route: 042
  39. INSULIN GLARGINE [Concomitant]
     Active Substance: INSULIN GLARGINE
     Indication: Diabetes mellitus
     Dosage: UNK
     Route: 065
  40. LANSOPRAZOLE [Concomitant]
     Active Substance: LANSOPRAZOLE
     Route: 042

REACTIONS (5)
  - Pneumonia bacterial [Recovering/Resolving]
  - Cytomegalovirus infection [Recovered/Resolved]
  - Asthenia [Not Recovered/Not Resolved]
  - Pneumomediastinum [Recovering/Resolving]
  - Anaemia [Not Recovered/Not Resolved]

NARRATIVE: CASE EVENT DATE: 20220404
